FAERS Safety Report 9579907 (Version 1)
Quarter: 2013Q3

REPORT INFORMATION
  Report Type: Spontaneous
  Country: US (occurrence: None)
  Receive Date: 20130930
  Receipt Date: 20130930
  Transmission Date: 20140515
  Serious: No
  Sender: FDA-Public Use
  Company Number: None

PATIENT
  Age: 8 Year
  Sex: Male
  Weight: 21.77 kg

DRUGS (2)
  1. METHYLPHENIDATE [Suspect]
     Indication: ATTENTION DEFICIT/HYPERACTIVITY DISORDER
     Dosage: ONCE DAILY
     Route: 048
     Dates: start: 20130907, end: 20130928
  2. METHYLPHENIDATE [Suspect]
     Indication: OPPOSITIONAL DEFIANT DISORDER
     Dosage: ONCE DAILY
     Route: 048
     Dates: start: 20130907, end: 20130928

REACTIONS (4)
  - Drug ineffective [None]
  - Oppositional defiant disorder [None]
  - Attention deficit/hyperactivity disorder [None]
  - Condition aggravated [None]
